FAERS Safety Report 5516876-0 (Version None)
Quarter: 2007Q4

REPORT INFORMATION
  Report Type: 
  Country: None (occurrence: None)
  Receive Date: 20071114
  Receipt Date: 20071114
  Transmission Date: 20080405
  Serious: Yes (Other)
  Sender: FDA-Public Use
  Company Number: A0694387A

PATIENT
  Age: 66 Year
  Sex: Female
  Weight: 79.1 kg

DRUGS (7)
  1. ALLI [Suspect]
     Indication: WEIGHT CONTROL
     Dates: start: 20071101, end: 20071108
  2. MICARDIS [Concomitant]
  3. ASPIRIN [Concomitant]
  4. NEXIUM [Concomitant]
  5. PAXIL [Concomitant]
  6. SIMVASTATIN [Concomitant]
  7. ZETIA [Concomitant]

REACTIONS (6)
  - ANAL FISSURE [None]
  - DIARRHOEA [None]
  - FLATULENCE [None]
  - HAEMATOCHEZIA [None]
  - RECTAL DISCHARGE [None]
  - RECTAL HAEMORRHAGE [None]
